FAERS Safety Report 8790340 (Version 1)
Quarter: 2012Q4

REPORT INFORMATION
  Report Type: 
  Country: US (occurrence: US)
  Receive Date: 20120917
  Receipt Date: 20120917
  Transmission Date: 20130627
  Serious: Yes (Other)
  Sender: FDA-Public Use
  Company Number: US-SHIRE-ALL1-2012-04354

PATIENT
  Sex: Female
  Weight: 45.35 kg

DRUGS (3)
  1. ADDERALL XR [Suspect]
     Indication: ATTENTION DEFICIT/HYPERACTIVITY DISORDER
     Dosage: UNK, 1x/day:qd
     Route: 048
     Dates: end: 2009
  2. OTHER THERAPEUTIC PRODUCTS [Concomitant]
     Indication: THYROID DISORDER
     Dosage: UNK, 1x/day:qd
     Route: 048
  3. BUFFERIN                           /00002701/ [Concomitant]
     Indication: PRODUCT USED FOR UNKNOWN INDICATION
     Dosage: UNK, Unknown
     Route: 048

REACTIONS (1)
  - Suicidal ideation [Recovered/Resolved]
